FAERS Safety Report 13555135 (Version 1)
Quarter: 2017Q2

REPORT INFORMATION
  Report Type: Spontaneous
  Country: DE (occurrence: DE)
  Receive Date: 20170517
  Receipt Date: 20170517
  Transmission Date: 20170830
  Serious: Yes (Hospitalization, Other)
  Sender: FDA-Public Use
  Company Number: DE-JNJFOC-20170508861

PATIENT
  Age: 87 Year
  Sex: Female

DRUGS (6)
  1. RISPERDAL [Suspect]
     Active Substance: RISPERIDONE
     Indication: DEMENTIA
     Route: 048
     Dates: start: 20170209, end: 20170216
  2. RISPERDAL [Suspect]
     Active Substance: RISPERIDONE
     Indication: DEMENTIA
     Route: 048
     Dates: start: 20170217
  3. DONEPEZIL. [Concomitant]
     Active Substance: DONEPEZIL
     Route: 048
     Dates: start: 2015
  4. CLEXANE [Concomitant]
     Active Substance: ENOXAPARIN SODIUM
     Route: 058
     Dates: start: 20170227
  5. RISPERDAL [Suspect]
     Active Substance: RISPERIDONE
     Indication: DEMENTIA
     Route: 048
     Dates: start: 20170204, end: 20170208
  6. RISPERDAL [Suspect]
     Active Substance: RISPERIDONE
     Indication: DEMENTIA
     Route: 048
     Dates: start: 20170131, end: 20170203

REACTIONS (4)
  - Pneumonia [Recovered/Resolved]
  - Bronchial obstruction [Unknown]
  - Hospitalisation [Unknown]
  - Emphysema [Unknown]

NARRATIVE: CASE EVENT DATE: 20170203
